FAERS Safety Report 13922973 (Version 2)
Quarter: 2017Q4

REPORT INFORMATION
  Report Type: Report from Study
  Country: None (occurrence: FI)
  Receive Date: 20170830
  Receipt Date: 20171004
  Transmission Date: 20180320
  Serious: Yes (Hospitalization)
  Sender: FDA-Public Use
  Company Number: FI-ABBVIE-17K-055-2083285-00

PATIENT
  Sex: Male

DRUGS (2)
  1. DUODOPA [Suspect]
     Active Substance: CARBIDOPA\LEVODOPA
     Indication: PRODUCT USED FOR UNKNOWN INDICATION
     Route: 050
  2. MIDAZOLAM [Concomitant]
     Active Substance: MIDAZOLAM HYDROCHLORIDE
     Indication: MEDICAL DEVICE SITE ANAESTHESIA
     Dates: start: 201708, end: 201708

REACTIONS (3)
  - Embedded device [Recovered/Resolved]
  - Device occlusion [Recovered/Resolved]
  - Staphylococcal skin infection [Unknown]
